FAERS Safety Report 7865310-4 (Version None)
Quarter: 2011Q4

REPORT INFORMATION
  Report Type: 
  Country: None (occurrence: None)
  Receive Date: 20111028
  Receipt Date: 20101122
  Transmission Date: 20120403
  Serious: No
  Sender: FDA-Public Use
  Company Number: US-GLAXOSMITHKLINE-A0894509A

PATIENT
  Age: 50 Year
  Sex: Female

DRUGS (9)
  1. TRAZODONE HYDROCHLORIDE [Concomitant]
  2. XANAX XR [Concomitant]
  3. GEODON [Concomitant]
  4. VENTOLIN [Concomitant]
  5. LUNESTA [Concomitant]
  6. ADVAIR DISKUS 100/50 [Suspect]
     Indication: ASTHMA
     Dosage: 2PUFF TWICE PER DAY
     Route: 055
     Dates: start: 20101119
  7. ALLERGY INJECTION (UNSPECIFIED) [Concomitant]
  8. NORVASC [Concomitant]
  9. PAMELOR [Concomitant]

REACTIONS (2)
  - PRODUCT QUALITY ISSUE [None]
  - DYSPNOEA [None]
